FAERS Safety Report 22928404 (Version 3)
Quarter: 2023Q4

REPORT INFORMATION
  Report Type: Spontaneous
  Country: US (occurrence: US)
  Receive Date: 20230911
  Receipt Date: 20231007
  Transmission Date: 20240109
  Serious: No
  Sender: FDA-Public Use
  Company Number: US-HETERO-HET2023US02604

PATIENT
  Sex: Male
  Weight: 88.435 kg

DRUGS (2)
  1. SILDENAFIL [Suspect]
     Active Substance: SILDENAFIL
     Indication: Erectile dysfunction
     Dosage: 25 MILLIGRAM, T.I.W.
     Route: 048
  2. SILDENAFIL [Suspect]
     Active Substance: SILDENAFIL
     Dosage: 50 MILLIGRAM ONCE A WEEK ALWAYS AT NIGHT
     Route: 048

REACTIONS (1)
  - Drug ineffective [Unknown]
